FAERS Safety Report 7595612-0 (Version None)
Quarter: 2011Q3

REPORT INFORMATION
  Report Type: 
  Country: None (occurrence: None)
  Receive Date: 20110707
  Receipt Date: 20110624
  Transmission Date: 20111222
  Serious: Yes (Life-Threatening, Hospitalization)
  Sender: FDA-Public Use
  Company Number: FR-GLAXOSMITHKLINE-B0728466A

PATIENT
  Sex: Female

DRUGS (5)
  1. TAGAMET [Suspect]
     Indication: PREMEDICATION
     Dosage: 400MG SINGLE DOSE
     Route: 048
     Dates: start: 20110202, end: 20110202
  2. NIMBEX [Suspect]
     Indication: INDUCTION OF ANAESTHESIA
     Route: 042
     Dates: start: 20110202, end: 20110202
  3. CELOCURINE [Suspect]
     Indication: INDUCTION OF ANAESTHESIA
     Route: 042
     Dates: start: 20110202, end: 20110202
  4. SUFENTANIL CITRATE [Suspect]
     Indication: INDUCTION OF ANAESTHESIA
     Route: 042
     Dates: start: 20110202, end: 20110202
  5. KETALAR [Suspect]
     Indication: INDUCTION OF ANAESTHESIA
     Route: 042
     Dates: start: 20110202, end: 20110202

REACTIONS (5)
  - HYPOTENSION [None]
  - ERYTHEMA [None]
  - HYPOCAPNIA [None]
  - BRONCHOSPASM [None]
  - CIRCULATORY COLLAPSE [None]
